FAERS Safety Report 8318579-6 (Version None)
Quarter: 2012Q2

REPORT INFORMATION
  Report Type: 
  Country: None (occurrence: None)
  Receive Date: 20120426
  Receipt Date: 20120426
  Transmission Date: 20120825
  Serious: Yes (Death)
  Sender: FDA-Public Use
  Company Number: None

PATIENT
  Age: 69 Year
  Sex: Male
  Weight: 80.4681 kg

DRUGS (9)
  1. FLUTICASONE FUROATE [Concomitant]
  2. NORCO [Concomitant]
  3. METOPROLOL TARTRATE [Concomitant]
  4. ROMIDEPSIN 8MG/M^2 [Suspect]
     Indication: NON-SMALL CELL LUNG CANCER
     Dosage: 8MG/M^2 DAYS 1,8,15
     Dates: start: 20111221, end: 20120418
  5. ERLOTINIB HYDROCHLORIDE [Suspect]
     Indication: NON-SMALL CELL LUNG CANCER
     Dosage: 150MG PO QD
     Route: 048
     Dates: start: 20111224, end: 20120420
  6. PROAIR HFA [Concomitant]
  7. NEXIUM [Concomitant]
  8. CELEXA [Concomitant]
  9. LEVOTHYROXINE SODIUM [Concomitant]

REACTIONS (2)
  - MOUTH HAEMORRHAGE [None]
  - EPISTAXIS [None]
